APPROVED DRUG PRODUCT: DEXTROSE 7.7% IN PLASTIC CONTAINER
Active Ingredient: DEXTROSE
Strength: 7.7GM/100ML
Dosage Form/Route: INJECTABLE;INJECTION
Application: N019626 | Product #003
Applicant: B BRAUN MEDICAL INC
Approved: Feb 2, 1988 | RLD: No | RS: No | Type: DISCN